FAERS Safety Report 22088462 (Version 1)
Quarter: 2023Q1

REPORT INFORMATION
  Report Type: Spontaneous
  Country: US (occurrence: US)
  Receive Date: 20230313
  Receipt Date: 20230313
  Transmission Date: 20230418
  Serious: No
  Sender: FDA-Public Use
  Company Number: US-PHARMAESSENTIA CORPORATION-US-2023-PEC-000998

PATIENT

DRUGS (1)
  1. BESREMI [Suspect]
     Active Substance: ROPEGINTERFERON ALFA-2B-NJFT
     Indication: Polycythaemia vera
     Dosage: 100 MCG INCREASE50MCG EVERY 2 WEEKS AS DIRECTED
     Route: 058
     Dates: start: 20221230

REACTIONS (2)
  - Illness [Unknown]
  - Malaise [Not Recovered/Not Resolved]
